FAERS Safety Report 6253227-0 (Version None)
Quarter: 2009Q3

REPORT INFORMATION
  Report Type: 
  Country: None (occurrence: None)
  Receive Date: 20090701
  Receipt Date: 20090630
  Transmission Date: 20100115
  Serious: Yes (Death)
  Sender: FDA-Public Use
  Company Number: JP-JNJFOC-20090700152

PATIENT
  Sex: Male
  Weight: 40 kg

DRUGS (13)
  1. DUROTEP MT PATCH [Suspect]
     Route: 062
  2. DUROTEP MT PATCH [Suspect]
     Indication: CANCER PAIN
     Route: 062
  3. OXYNORM [Concomitant]
     Route: 048
  4. OXYNORM [Concomitant]
     Route: 048
  5. OXYNORM [Concomitant]
     Indication: CANCER PAIN
     Route: 048
  6. VOLTAREN [Concomitant]
     Indication: CANCER PAIN
     Route: 054
  7. AMOBAN [Concomitant]
     Indication: DEPRESSION
     Route: 048
  8. PAXIL [Concomitant]
     Indication: DEPRESSION
     Route: 048
  9. BENZALIN [Concomitant]
     Indication: DEPRESSION
     Route: 048
  10. SEROQUEL [Concomitant]
     Indication: DEPRESSION
     Route: 048
  11. ALFACALCIDOL [Concomitant]
     Route: 048
  12. TAKEPRON [Concomitant]
     Route: 048
  13. SENIRAN [Concomitant]
     Dosage: AS NEEDED
     Route: 054

REACTIONS (1)
  - GASTRIC CANCER [None]
